FAERS Safety Report 6569642-1 (Version None)
Quarter: 2010Q1

REPORT INFORMATION
  Report Type: 
  Country: None (occurrence: None)
  Receive Date: 20100204
  Receipt Date: 20100127
  Transmission Date: 20100710
  Serious: Yes (Hospitalization)
  Sender: FDA-Public Use
  Company Number: SE-SANOFI-AVENTIS-2010SA005025

PATIENT
  Age: 70 Year
  Sex: Female

DRUGS (3)
  1. ARAVA [Suspect]
     Indication: RHEUMATOID ARTHRITIS
     Route: 048
     Dates: end: 20090101
  2. METHOTREXATE [Suspect]
     Dosage: 8 TABLETS WEEKLY
     Route: 048
     Dates: end: 20090101
  3. HUMIRA [Suspect]
     Route: 058
     Dates: end: 20090101

REACTIONS (1)
  - OSTEOMYELITIS [None]
